FAERS Safety Report 6974803-3 (Version None)
Quarter: 2010Q3

REPORT INFORMATION
  Report Type: 
  Country: None (occurrence: None)
  Receive Date: 20100909
  Receipt Date: 20081208
  Transmission Date: 20110219
  Serious: No
  Sender: FDA-Public Use
  Company Number: US-WYE-H07137308

PATIENT
  Sex: Female
  Weight: 89.89 kg

DRUGS (4)
  1. PRISTIQ [Suspect]
     Indication: DEPRESSION
     Route: 048
     Dates: start: 20081101
  2. CLONAZEPAM [Concomitant]
  3. ALPRAZOLAM [Concomitant]
  4. CELEBREX [Concomitant]

REACTIONS (3)
  - DYSPHAGIA [None]
  - INSOMNIA [None]
  - SENSATION OF FOREIGN BODY [None]
